FAERS Safety Report 25937753 (Version 1)
Quarter: 2025Q4

REPORT INFORMATION
  Report Type: Spontaneous
  Country: GB (occurrence: GB)
  Receive Date: 20251018
  Receipt Date: 20251018
  Transmission Date: 20260118
  Serious: Yes (Hospitalization)
  Sender: NOVEN
  Company Number: GB-NOVEN PHARMACEUTICALS, INC.-2025-NOV-GB001763

PATIENT
  Age: 7 Year
  Sex: Male

DRUGS (2)
  1. METHYLPHENIDATE [Suspect]
     Active Substance: METHYLPHENIDATE
     Indication: Attention deficit hyperactivity disorder
     Dosage: 10 MG, TWICE DAILY
     Route: 065
  2. METHYLPHENIDATE [Suspect]
     Active Substance: METHYLPHENIDATE
     Dosage: 5 MG, TWICE DAILY
     Route: 065

REACTIONS (3)
  - Ataxia [Recovered/Resolved]
  - Choreoathetosis [Recovered/Resolved]
  - Dyskinesia [Recovered/Resolved]
